FAERS Safety Report 12202259 (Version 2)
Quarter: 2016Q2

REPORT INFORMATION
  Report Type: Spontaneous
  Country: US (occurrence: US)
  Receive Date: 20160322
  Receipt Date: 20160509
  Transmission Date: 20160815
  Serious: No
  Sender: FDA-Public Use
  Company Number: US-ACTELION PHARMACEUTICALS US, INC.-A-NJ2016-131224

PATIENT
  Age: 55 Year
  Sex: Male

DRUGS (3)
  1. VENTAVIS [Suspect]
     Active Substance: ILOPROST
     Dosage: 5 MCG, 6-9X/DAILY (10 MCG/ML)
     Route: 055
  2. VENTAVIS [Suspect]
     Active Substance: ILOPROST
     Indication: PULMONARY ARTERIAL HYPERTENSION
     Dosage: 5 MCG, 6-9X/DAILY (20 MCG/ML)
     Route: 055
     Dates: start: 20150421
  3. VENTAVIS [Suspect]
     Active Substance: ILOPROST
     Dosage: 5 MCG, 6-9X/DAILY (20 MCG/ML)
     Route: 055

REACTIONS (13)
  - Treatment noncompliance [Unknown]
  - Oropharyngeal pain [Unknown]
  - Headache [Unknown]
  - Food aversion [Unknown]
  - Feeling abnormal [Unknown]
  - Drug dose omission [Unknown]
  - Abdominal distension [Unknown]
  - Rhinorrhoea [Unknown]
  - Back pain [Unknown]
  - Myalgia [Unknown]
  - Cough [Unknown]
  - Nasopharyngitis [Unknown]
  - Ageusia [Unknown]
